FAERS Safety Report 7979466-6 (Version None)
Quarter: 2011Q4

REPORT INFORMATION
  Report Type: 
  Country: None (occurrence: None)
  Receive Date: 20111214
  Receipt Date: 20111205
  Transmission Date: 20120403
  Serious: Yes (Death)
  Sender: FDA-Public Use
  Company Number: PHHY2011US108217

PATIENT
  Age: 90 Year
  Sex: Male

DRUGS (5)
  1. METOPROLOL TARTRATE [Suspect]
     Dosage: UNK UKN, UNK
  2. LISINOPRIL [Suspect]
  3. CLOPIDOGREL [Suspect]
  4. DIGOXIN [Suspect]
  5. HYDROCHLOROTHIAZIDE [Suspect]

REACTIONS (1)
  - MEDICATION ERROR [None]
